FAERS Safety Report 8093464-6 (Version None)
Quarter: 2012Q1

REPORT INFORMATION
  Report Type: 
  Country: None (occurrence: None)
  Receive Date: 20120129
  Receipt Date: 20110902
  Transmission Date: 20120608
  Serious: No
  Sender: FDA-Public Use
  Company Number: US-ABBOTT-11P-163-0851307-00

PATIENT
  Sex: Female
  Weight: 72.64 kg

DRUGS (9)
  1. HUMIRA [Suspect]
     Route: 058
     Dates: start: 20110401
  2. ASPIRIN [Concomitant]
     Indication: PRODUCT USED FOR UNKNOWN INDICATION
  3. FLUOXETINE HYDROCHLORIDE [Concomitant]
     Indication: PRODUCT USED FOR UNKNOWN INDICATION
  4. HUMIRA [Suspect]
     Indication: PSORIATIC ARTHROPATHY
     Route: 058
  5. MAXZIDE [Concomitant]
     Indication: HYPERTENSION
  6. FISH OIL [Concomitant]
     Indication: PRODUCT USED FOR UNKNOWN INDICATION
  7. HUMIRA [Suspect]
     Route: 058
     Dates: end: 20110301
  8. MAGNESIUM [Concomitant]
     Indication: PRODUCT USED FOR UNKNOWN INDICATION
  9. GLIPIZIDE [Concomitant]
     Indication: DIABETES MELLITUS

REACTIONS (4)
  - HEADACHE [None]
  - PSORIATIC ARTHROPATHY [None]
  - PSORIASIS [None]
  - JOINT SWELLING [None]
